FAERS Safety Report 4896299-8 (Version None)
Quarter: 2006Q1

REPORT INFORMATION
  Report Type: 
  Country: None (occurrence: None)
  Receive Date: 20060126
  Receipt Date: 20060112
  Transmission Date: 20060701
  Serious: Yes (Hospitalization)
  Sender: FDA-Public Use
  Company Number: 200600326

PATIENT
  Age: 34 Year
  Sex: Female

DRUGS (2)
  1. ZYMAR [Suspect]
     Indication: POSTOPERATIVE CARE
     Dosage: 2 DROP QID EYE
     Route: 047
     Dates: start: 20051230, end: 20060105
  2. PRED FORTE [Suspect]
     Indication: POSTOPERATIVE CARE
     Dosage: 2 DROP QID EYE
     Route: 047
     Dates: start: 20051230, end: 20060105

REACTIONS (1)
  - ANGIONEUROTIC OEDEMA [None]
